FAERS Safety Report 18960603 (Version 3)
Quarter: 2021Q1

REPORT INFORMATION
  Report Type: Report from Study
  Country: PL (occurrence: PL)
  Receive Date: 20210302
  Receipt Date: 20210325
  Transmission Date: 20210420
  Serious: Yes (Hospitalization)
  Sender: FDA-Public Use
  Company Number: PL-EISAI MEDICAL RESEARCH-EC-2021-088691

PATIENT
  Age: 50 Year
  Sex: Male
  Weight: 130 kg

DRUGS (23)
  1. OPACORDEN [Concomitant]
     Active Substance: AMIODARONE HYDROCHLORIDE
     Dates: start: 202102
  2. CORONAL [Concomitant]
     Dates: start: 201701
  3. EUTHYROX [Concomitant]
     Active Substance: LEVOTHYROXINE SODIUM
     Dates: start: 202102
  4. AMIODARONE [Concomitant]
     Active Substance: AMIODARONE
     Dates: start: 202102, end: 202102
  5. SPIRONOL [Concomitant]
     Active Substance: SPIRONOLACTONE
     Dates: start: 202102
  6. CO PRESTARIUM [Concomitant]
     Dates: start: 202102
  7. ATORIS [Concomitant]
     Active Substance: ATORVASTATIN CALCIUM
     Dates: start: 202102
  8. LETROX [Concomitant]
     Active Substance: LEVOTHYROXINE SODIUM
     Dates: start: 200501
  9. PYRALGIN [Concomitant]
     Dates: start: 20210202, end: 20210202
  10. HYDROCORTISONE. [Concomitant]
     Active Substance: HYDROCORTISONE
     Dates: start: 20210202, end: 20210202
  11. MK?4280 [Suspect]
     Active Substance: INVESTIGATIONAL PRODUCT
     Route: 041
     Dates: start: 20210202, end: 20210202
  12. KALIPOZ [Concomitant]
     Active Substance: POTASSIUM CHLORIDE
     Dates: start: 202102
  13. PEMBROLIZUMAB. [Suspect]
     Active Substance: PEMBROLIZUMAB
     Indication: COLON CANCER
     Route: 041
     Dates: start: 20210112, end: 20210112
  14. MK?4280 [Suspect]
     Active Substance: INVESTIGATIONAL PRODUCT
     Indication: COLON CANCER
     Route: 041
     Dates: start: 20210112, end: 20210112
  15. NAXALGAN [Concomitant]
     Dates: start: 201701
  16. CLEMASTINE [Concomitant]
     Active Substance: CLEMASTINE
     Dates: start: 20210202, end: 20210202
  17. METOPROLOL TARTRATE. [Concomitant]
     Active Substance: METOPROLOL TARTRATE
     Dates: start: 202102
  18. LENVATINIB [Suspect]
     Active Substance: LENVATINIB
     Indication: COLON CANCER
     Route: 048
     Dates: start: 2021
  19. PEMBROLIZUMAB. [Suspect]
     Active Substance: PEMBROLIZUMAB
     Route: 041
     Dates: start: 20210202, end: 20210202
  20. TRIPLIXAM [Concomitant]
     Active Substance: AMLODIPINE BESYLATE\INDAPAMIDE\PERINDOPRIL ARGININE
     Dates: start: 201701, end: 20210216
  21. CHOLECALCIFEROL [Concomitant]
     Active Substance: CHOLECALCIFEROL
     Dates: start: 20210129
  22. NEOPARIN [Concomitant]
     Active Substance: ENOXAPARIN SODIUM
     Route: 058
     Dates: start: 202001
  23. KALIPOZ [Concomitant]
     Active Substance: POTASSIUM CHLORIDE
     Dates: start: 20210126

REACTIONS (1)
  - Atrial fibrillation [Recovered/Resolved with Sequelae]

NARRATIVE: CASE EVENT DATE: 20210216
